FAERS Safety Report 14611747 (Version 1)
Quarter: 2018Q1

REPORT INFORMATION
  Report Type: Spontaneous
  Country: US (occurrence: US)
  Receive Date: 20180308
  Receipt Date: 20180308
  Transmission Date: 20180509
  Serious: Yes (Other)
  Sender: FDA-Public Use
  Company Number: US-PFIZER INC-2018093842

PATIENT
  Age: 44 Year
  Sex: Female

DRUGS (12)
  1. ENBREL [Suspect]
     Active Substance: ETANERCEPT
     Indication: JUVENILE IDIOPATHIC ARTHRITIS
     Dosage: 50 MG, QWK
     Route: 065
     Dates: start: 2016
  2. ENBREL [Suspect]
     Active Substance: ETANERCEPT
     Indication: SJOGREN^S SYNDROME
  3. ENBREL [Suspect]
     Active Substance: ETANERCEPT
     Indication: EYE INFLAMMATION
  4. ENBREL [Suspect]
     Active Substance: ETANERCEPT
     Indication: UVEITIS
  5. ENBREL [Suspect]
     Active Substance: ETANERCEPT
     Indication: UVEITIS
  6. HUMIRA [Concomitant]
     Active Substance: ADALIMUMAB
     Dosage: UNK
  7. ENBREL [Suspect]
     Active Substance: ETANERCEPT
     Indication: SJOGREN^S SYNDROME
     Dosage: 25 MG, 2 TIMES/WK
     Route: 065
  8. ENBREL [Suspect]
     Active Substance: ETANERCEPT
     Indication: UVEITIS
  9. ENBREL [Suspect]
     Active Substance: ETANERCEPT
     Indication: JUVENILE IDIOPATHIC ARTHRITIS
  10. METHOTREXATE SODIUM. [Suspect]
     Active Substance: METHOTREXATE SODIUM
     Dosage: UNK
     Route: 065
  11. ENBREL [Suspect]
     Active Substance: ETANERCEPT
     Indication: UVEITIS
  12. ENBREL [Suspect]
     Active Substance: ETANERCEPT
     Indication: EYE INFLAMMATION

REACTIONS (4)
  - Injection site reaction [Unknown]
  - Injection site cellulitis [Unknown]
  - Headache [Unknown]
  - Injection site mass [Unknown]
